FAERS Safety Report 6128836-X (Version None)
Quarter: 2009Q1

REPORT INFORMATION
  Report Type: 
  Country: None (occurrence: None)
  Receive Date: 20090320
  Receipt Date: 20090310
  Transmission Date: 20090719
  Serious: Yes (Hospitalization)
  Sender: FDA-Public Use
  Company Number: 2008S1000400

PATIENT
  Age: 65 Year
  Sex: Male

DRUGS (11)
  1. CUBICIN [Suspect]
     Indication: EXTRADURAL ABSCESS
     Dosage: 6 MG/KG;Q24H; IV
     Route: 042
  2. CUBICIN [Suspect]
     Indication: STAPHYLOCOCCAL OSTEOMYELITIS
     Dosage: 6 MG/KG;Q24H; IV
     Route: 042
  3. VANCOMYCIN [Concomitant]
  4. RIFAMPIN [Concomitant]
  5. GABAPENTIN [Concomitant]
  6. SOTALOL HYDROCHLORIDE [Concomitant]
  7. ATORVASTATIN [Concomitant]
  8. LEVOTHYROXINE [Concomitant]
  9. PANTOPRAZOLE SODIUM [Concomitant]
  10. ASPIRIN [Concomitant]
  11. HEPARIN [Concomitant]

REACTIONS (6)
  - BRONCHOALVEOLAR LAVAGE ABNORMAL [None]
  - EOSINOPHILIC PNEUMONIA [None]
  - PLEURAL EFFUSION [None]
  - PSEUDOMONAS INFECTION [None]
  - RENAL FAILURE ACUTE [None]
  - RESPIRATORY FAILURE [None]
